FAERS Safety Report 18737483 (Version 1)
Quarter: 2021Q1

REPORT INFORMATION
  Report Type: Spontaneous
  Country: US (occurrence: US)
  Receive Date: 20210113
  Receipt Date: 20210113
  Transmission Date: 20210419
  Serious: Yes (Hospitalization)
  Sender: FDA-Public Use
  Company Number: US-PFIZER INC-2021019685

PATIENT
  Age: 80 Year
  Sex: Male
  Weight: 86.18 kg

DRUGS (3)
  1. MEKTOVI [Suspect]
     Active Substance: BINIMETINIB
     Indication: MALIGNANT MELANOMA
     Dosage: 15 MG, 3X/DAY
     Route: 048
     Dates: start: 2019
  2. BRAFTOVI [Suspect]
     Active Substance: ENCORAFENIB
     Indication: MALIGNANT MELANOMA
     Dosage: 75 MG, 4X/DAY
     Route: 048
     Dates: start: 2019
  3. BRAFTOVI [Suspect]
     Active Substance: ENCORAFENIB
     Dosage: 75 MG, 4X/DAY
     Route: 048

REACTIONS (1)
  - Electrocardiogram abnormal [Unknown]

NARRATIVE: CASE EVENT DATE: 201904
